FAERS Safety Report 23654864 (Version 2)
Quarter: 2024Q3

REPORT INFORMATION
  Report Type: Spontaneous
  Country: US (occurrence: US)
  Receive Date: 20240320
  Receipt Date: 20240830
  Transmission Date: 20241017
  Serious: No
  Sender: MYLAN
  Company Number: US-MYLANLABS-2024M1021936

PATIENT

DRUGS (1)
  1. GEODON [Suspect]
     Active Substance: ZIPRASIDONE HYDROCHLORIDE\ZIPRASIDONE MESYLATE
     Indication: Psychotic disorder
     Dosage: UNK
     Route: 065

REACTIONS (5)
  - Abnormal dreams [Unknown]
  - Illness [Unknown]
  - Nausea [Unknown]
  - Therapeutic response unexpected [Unknown]
  - Off label use [Unknown]
